FAERS Safety Report 5311811-2 (Version None)
Quarter: 2007Q2

REPORT INFORMATION
  Report Type: 
  Country: None (occurrence: None)
  Receive Date: 20070430
  Receipt Date: 20060407
  Transmission Date: 20071010
  Serious: Yes (Hospitalization)
  Sender: FDA-Public Use
  Company Number: 2006UW04760

PATIENT
  Age: 88 Year
  Sex: Male
  Weight: 106.6 kg

DRUGS (2)
  1. NEXIUM [Suspect]
     Indication: CHEST PAIN
     Route: 048
  2. A FEW [Concomitant]

REACTIONS (2)
  - CHEST PAIN [None]
  - DRUG INEFFECTIVE [None]
